FAERS Safety Report 6460731-9 (Version None)
Quarter: 2009Q4

REPORT INFORMATION
  Report Type: 
  Country: None (occurrence: None)
  Receive Date: 20091125
  Receipt Date: 20091125
  Transmission Date: 20100525
  Serious: Yes (Hospitalization)
  Sender: FDA-Public Use
  Company Number: None

PATIENT
  Age: 61 Year
  Sex: Male
  Weight: 73 kg

DRUGS (2)
  1. OXALIPLATIN [Suspect]
     Indication: PROSTATE CANCER
     Dosage: 204 MG DAY 1 Q 21 DAYS IV
     Route: 042
     Dates: start: 20090203, end: 20091005
  2. PEMETREXED [Suspect]
     Indication: PROSTATE CANCER
     Dosage: 850 MG DAY 1 Q 21 DAYS IV
     Route: 042
     Dates: start: 20090203, end: 20091005

REACTIONS (7)
  - CULTURE URINE POSITIVE [None]
  - DEVICE RELATED INFECTION [None]
  - ESCHERICHIA INFECTION [None]
  - HAEMOGLOBIN DECREASED [None]
  - NEUTROPHIL COUNT DECREASED [None]
  - STAPHYLOCOCCAL INFECTION [None]
  - THROMBOCYTOPENIA [None]
